FAERS Safety Report 22062446 (Version 3)
Quarter: 2023Q1

REPORT INFORMATION
  Report Type: Spontaneous
  Country: US (occurrence: US)
  Receive Date: 20230305
  Receipt Date: 20230323
  Transmission Date: 20230417
  Serious: No
  Sender: FDA-Public Use
  Company Number: US-JNJFOC-20230263354

PATIENT
  Age: 52 Year
  Sex: Male
  Weight: 128.48 kg

DRUGS (2)
  1. STELARA [Suspect]
     Active Substance: USTEKINUMAB
     Indication: Psoriasis
     Route: 058
  2. STELARA [Suspect]
     Active Substance: USTEKINUMAB

REACTIONS (9)
  - Psoriasis [Not Recovered/Not Resolved]
  - Needle issue [Unknown]
  - Product dose omission issue [Unknown]
  - Insomnia [Unknown]
  - Device issue [Unknown]
  - Heart rate increased [Unknown]
  - Blood pressure increased [Unknown]
  - Ill-defined disorder [Unknown]
  - Skin laceration [Unknown]
